FAERS Safety Report 6112461-0 (Version None)
Quarter: 2009Q1

REPORT INFORMATION
  Report Type: 
  Country: None (occurrence: None)
  Receive Date: 20090310
  Receipt Date: 20090112
  Transmission Date: 20090719
  Serious: Yes (Hospitalization)
  Sender: FDA-Public Use
  Company Number: US-2009-00012

PATIENT
  Age: 9 Year
  Sex: Male
  Weight: 31.2 kg

DRUGS (1)
  1. SERTRALINE HYDROCHLORIDE [Suspect]
     Dosage: PATIENT RECEIVED ONLY 1, 50-MG

REACTIONS (1)
  - SEROTONIN SYNDROME [None]
